FAERS Safety Report 6083114-2 (Version None)
Quarter: 2009Q1

REPORT INFORMATION
  Report Type: 
  Country: None (occurrence: None)
  Receive Date: 20090213
  Receipt Date: 20090213
  Transmission Date: 20090719
  Serious: No
  Sender: FDA-Public Use
  Company Number: None

PATIENT
  Sex: Female
  Weight: 54.4316 kg

DRUGS (2)
  1. MELOXICAM [Suspect]
     Indication: BACK PAIN
     Dosage: 15 MG 1 TABLET DAILY
     Dates: start: 20090122
  2. MELOXICAM [Suspect]
     Indication: BACK PAIN
     Dosage: 15 MG 1 TABLET DAILY
     Dates: start: 20090123

REACTIONS (5)
  - DIZZINESS [None]
  - FEELING HOT [None]
  - HEADACHE [None]
  - HYPOAESTHESIA [None]
  - NAUSEA [None]
